FAERS Safety Report 6074832-0 (Version None)
Quarter: 2009Q1

REPORT INFORMATION
  Report Type: 
  Country: None (occurrence: None)
  Receive Date: 20090212
  Receipt Date: 20090202
  Transmission Date: 20090719
  Serious: Yes (Other)
  Sender: FDA-Public Use
  Company Number: PHEH2006US11384

PATIENT
  Sex: Male

DRUGS (14)
  1. AREDIA [Suspect]
     Indication: LUNG NEOPLASM MALIGNANT
     Dosage: PER 30 MG/ 3 UNITS
  2. ZOMETA [Suspect]
     Indication: METASTASES TO BONE
     Dosage: 1 MG (4 UNITS)
  3. GLUCOPHAGE [Concomitant]
  4. GLUCOTROL [Concomitant]
  5. LIPITOR [Concomitant]
  6. ANTINEOPLASTIC AGENTS [Concomitant]
     Dosage: UNK
     Dates: start: 20040101
  7. RADIATION THERAPY [Concomitant]
     Dosage: UNK
     Dates: start: 20040101
  8. CARBOPLATIN [Concomitant]
     Dosage: 50 MG, 13 UNITS
     Route: 042
  9. SODIUM CHLORIDE [Concomitant]
     Dosage: 250 ML, UNK
     Route: 042
  10. CIMETIDINE [Concomitant]
     Dosage: 300 MG, UNK
     Route: 042
  11. DIPHENHYDRAMINE HCL [Concomitant]
     Dosage: UP TO 50 MG
     Route: 042
  12. PACLITAXEL [Concomitant]
     Dosage: 30 MG, 12 UNITS
  13. DEXAMETHASONE TAB [Concomitant]
     Dosage: 4 MG, 5 UNITS
     Route: 048
  14. GRANISETRON HYDROCHLORIDE [Concomitant]
     Dosage: 1 MG, 2 UNITS

REACTIONS (20)
  - ANAEMIA [None]
  - ANXIETY [None]
  - BONE NEOPLASM MALIGNANT [None]
  - DECREASED INTEREST [None]
  - DEFORMITY [None]
  - DIABETES MELLITUS [None]
  - EMOTIONAL DISTRESS [None]
  - GENERAL PHYSICAL HEALTH DETERIORATION [None]
  - HYPOAESTHESIA [None]
  - INJURY [None]
  - JAW OPERATION [None]
  - KNEE OPERATION [None]
  - LIFE EXPECTANCY SHORTENED [None]
  - NEOPLASM [None]
  - OSTEONECROSIS [None]
  - PAIN [None]
  - RASH PAPULAR [None]
  - SKIN DISCOLOURATION [None]
  - SKIN DISORDER [None]
  - TOOTH LOSS [None]
